FAERS Safety Report 12877417 (Version 1)
Quarter: 2016Q4

REPORT INFORMATION
  Report Type: Spontaneous
  Country: JP (occurrence: JP)
  Receive Date: 20161024
  Receipt Date: 20161024
  Transmission Date: 20170207
  Serious: Yes (Other)
  Sender: FDA-Public Use
  Company Number: JP-BRISTOL-MYERS SQUIBB COMPANY-BMS-2016-060877

PATIENT
  Age: 68 Year
  Sex: Female

DRUGS (4)
  1. MAINTATE [Concomitant]
     Active Substance: BISOPROLOL FUMARATE
     Indication: ATRIAL FIBRILLATION
     Dosage: 1.25 MG, UNK
     Route: 048
     Dates: start: 20130517
  2. AMLODIPINE BESILATE [Concomitant]
     Active Substance: AMLODIPINE BESYLATE
     Indication: HYPERTENSION
     Dosage: 1 UNK, UNK
     Route: 048
     Dates: start: 20130430
  3. ATORVASTATIN CALCIUM. [Concomitant]
     Active Substance: ATORVASTATIN CALCIUM
     Indication: HYPERTENSION
     Dosage: 1 UNK, UNK
     Route: 048
     Dates: start: 20130430
  4. ELIQUIS [Suspect]
     Active Substance: APIXABAN
     Indication: CEREBROVASCULAR ACCIDENT PROPHYLAXIS
     Dosage: 5 MG, BID
     Route: 048
     Dates: start: 20140722

REACTIONS (2)
  - Limb operation [Recovered/Resolved]
  - Tenosynovitis [Recovered/Resolved]
